FAERS Safety Report 13112433 (Version 2)
Quarter: 2018Q3

REPORT INFORMATION
  Report Type: Spontaneous
  Country: ES (occurrence: ES)
  Receive Date: 20170113
  Receipt Date: 20180706
  Transmission Date: 20181010
  Serious: Yes (Life-Threatening, Hospitalization, Other)
  Sender: FDA-Public Use
  Company Number: PHHY2017ES003071

PATIENT
  Age: 84 Year
  Sex: Male

DRUGS (10)
  1. CLONAZEPAM. [Suspect]
     Active Substance: CLONAZEPAM
     Indication: PRODUCT USED FOR UNKNOWN INDICATION
     Dosage: 0.125 MG, UNK
     Route: 065
  2. QUETIAPINE. [Suspect]
     Active Substance: QUETIAPINE
     Indication: LOSS OF CONSCIOUSNESS
     Dosage: 25 MG, UNK
     Route: 065
  3. QUETIAPINE. [Suspect]
     Active Substance: QUETIAPINE
     Dosage: 12.5 MG OF FIXED FORM IN THE DINNERS
     Route: 065
  4. OLANZAPINE. [Suspect]
     Active Substance: OLANZAPINE
     Indication: LOSS OF CONSCIOUSNESS
     Dosage: 2.5 MG, Q12H
     Route: 065
  5. DONEPEZIL. [Suspect]
     Active Substance: DONEPEZIL
     Indication: LOSS OF CONSCIOUSNESS
     Dosage: 10 MG, QD
     Route: 065
  6. TAMSULOSIN [Concomitant]
     Active Substance: TAMSULOSIN
     Indication: PRODUCT USED FOR UNKNOWN INDICATION
     Dosage: 0.4 MG, UNK
     Route: 065
  7. AMOXICILLIN/CLAVULANIC ACID [Concomitant]
     Active Substance: AMOXICILLIN\CLAVULANIC ACID
     Indication: PYREXIA
     Route: 065
  8. TIOTROPIUM BROMIDE [Concomitant]
     Active Substance: TIOTROPIUM BROMIDE
     Indication: PRODUCT USED FOR UNKNOWN INDICATION
     Dosage: 18 UG, QD
     Route: 065
  9. OLANZAPINE. [Suspect]
     Active Substance: OLANZAPINE
     Dosage: 5 MG, UNK
     Route: 065
  10. CLONAZEPAM. [Suspect]
     Active Substance: CLONAZEPAM
     Route: 065

REACTIONS (11)
  - Neuroleptic malignant syndrome [Recovered/Resolved]
  - Muscle rigidity [Recovered/Resolved]
  - Myoclonus [Recovered/Resolved]
  - Respiratory tract infection [Recovered/Resolved]
  - Drug interaction [Unknown]
  - Pyrexia [Recovered/Resolved]
  - Hyperhidrosis [Recovered/Resolved]
  - Respiratory failure [Recovered/Resolved]
  - Acute kidney injury [Recovered/Resolved]
  - Tremor [Recovered/Resolved]
  - Depressed level of consciousness [Recovered/Resolved]
